FAERS Safety Report 6971563-7 (Version None)
Quarter: 2010Q3

REPORT INFORMATION
  Report Type: 
  Country: None (occurrence: None)
  Receive Date: 20100908
  Receipt Date: 20100903
  Transmission Date: 20110219
  Serious: Yes (Life-Threatening, Hospitalization)
  Sender: FDA-Public Use
  Company Number: BR-ASTRAZENECA-2009UW06504

PATIENT
  Age: 90 Year
  Sex: Female
  Weight: 64 kg

DRUGS (7)
  1. CRESTOR [Suspect]
     Indication: CAROTID ARTERY OCCLUSION
     Route: 048
     Dates: start: 20090201, end: 20100501
  2. LEXAPRO [Concomitant]
     Indication: DEPRESSION
     Route: 048
     Dates: start: 20081201
  3. AMLODIPINE [Concomitant]
     Indication: HYPERTENSION
     Route: 048
     Dates: start: 20090101
  4. INDAPAMIDE [Concomitant]
     Indication: HYPERTENSION
     Route: 048
     Dates: start: 20090101
  5. AZOPT [Concomitant]
     Indication: GLAUCOMA
     Route: 047
     Dates: start: 20070101
  6. LUGMAN [Concomitant]
     Indication: GLAUCOMA
     Dosage: 1 DROP OD
     Route: 047
     Dates: start: 20070101
  7. ANLODIPINE BENZILATE [Concomitant]
     Indication: HYPERTENSION
     Route: 048
     Dates: start: 20090101

REACTIONS (9)
  - AMNESIA [None]
  - CONSTIPATION [None]
  - COUGH [None]
  - INGUINAL HERNIA [None]
  - PANIC ATTACK [None]
  - PRESYNCOPE [None]
  - PRURITUS [None]
  - RHINORRHOEA [None]
  - WEIGHT INCREASED [None]
